FAERS Safety Report 4838293-9 (Version None)
Quarter: 2005Q4

REPORT INFORMATION
  Report Type: 
  Country: None (occurrence: None)
  Receive Date: 20051123
  Receipt Date: 20051117
  Transmission Date: 20060501
  Serious: Yes (Death, Hospitalization)
  Sender: FDA-Public Use
  Company Number: 2005-CZ-01084

PATIENT
  Age: 80 Year
  Sex: Female

DRUGS (12)
  1. TRAMADOL HYDROCHLORIDE              (TRAMADOL) [Suspect]
     Indication: BACK PAIN
     Dosage: 150 MG, 3 IN 1 D, ORAL
     Route: 048
     Dates: start: 20040722, end: 20040722
  2. AMITRIPTYLINE HCL [Suspect]
     Dosage: 25 MG TDS-100 MG NOCTE,
  3. CELECOXIB [Concomitant]
  4. BACLOFEN [Concomitant]
  5. TENORETIC 100 [Concomitant]
  6. SIMVASTATIN [Concomitant]
  7. TEMAZEPAM [Concomitant]
  8. DI-GESIC [Concomitant]
  9. LEVOTHYROXINE SODIUM [Concomitant]
  10. ACETYLSALICYLIC ACID [Concomitant]
  11. MORPHINE [Concomitant]
  12. PARAMOL-118 [Concomitant]

REACTIONS (5)
  - ABNORMAL BEHAVIOUR [None]
  - CONFUSIONAL STATE [None]
  - GENERAL PHYSICAL HEALTH DETERIORATION [None]
  - MYOCARDIAL INFARCTION [None]
  - PNEUMONIA ASPIRATION [None]
